FAERS Safety Report 23288145 (Version 1)
Quarter: 2023Q4

REPORT INFORMATION
  Report Type: Spontaneous
  Country: JP (occurrence: JP)
  Receive Date: 20231212
  Receipt Date: 20231212
  Transmission Date: 20240109
  Serious: Yes (Hospitalization)
  Sender: FDA-Public Use
  Company Number: JP-PFIZER INC-PV202300200983

PATIENT
  Age: 58 Year
  Sex: Female
  Weight: 43.7 kg

DRUGS (3)
  1. MEROPENEM [Suspect]
     Active Substance: MEROPENEM
     Indication: Pyelonephritis
     Dosage: 1 G, 3X/DAY
     Route: 041
     Dates: start: 20210507
  2. MEROPENEM [Suspect]
     Active Substance: MEROPENEM
     Dosage: 1 G, 3X/DAY
     Route: 041
     Dates: start: 20210514, end: 20210524
  3. PIPERACILLIN SODIUM\TAZOBACTAM SODIUM [Suspect]
     Active Substance: PIPERACILLIN SODIUM\TAZOBACTAM SODIUM
     Indication: Pyelonephritis
     Dosage: 4.5 MG, 3X/DAY
     Route: 042
     Dates: start: 20210502, end: 20210506

REACTIONS (2)
  - Tubulointerstitial nephritis [Recovering/Resolving]
  - Renal impairment [Unknown]

NARRATIVE: CASE EVENT DATE: 20210501
